FAERS Safety Report 15500050 (Version 1)
Quarter: 2018Q4

REPORT INFORMATION
  Report Type: Report from Study
  Country: MX (occurrence: MX)
  Receive Date: 20181015
  Receipt Date: 20181015
  Transmission Date: 20190205
  Serious: Yes (Other)
  Sender: FDA-Public Use
  Company Number: PHHY2018MX007998

PATIENT
  Age: 49 Year
  Sex: Female

DRUGS (12)
  1. ZYKADIA [Suspect]
     Active Substance: CERITINIB
     Indication: LUNG NEOPLASM MALIGNANT
     Dosage: 3(150 MG), QD
     Route: 048
     Dates: start: 201803
  2. ULTIBRO BREEZHALER [Suspect]
     Active Substance: GLYCOPYRRONIUM\INDACATEROL
     Indication: LUNG DISORDER
     Dosage: 1 (110/150 MCG)
     Route: 055
  3. CRESTOR [Concomitant]
     Active Substance: ROSUVASTATIN CALCIUM
     Indication: BLOOD CHOLESTEROL ABNORMAL
     Dosage: 1 (20 MG), QD
     Route: 065
     Dates: start: 201803
  4. METICORTEN [Concomitant]
     Active Substance: PREDNISONE
     Indication: THYROID DISORDER
     Dosage: 5 MG, QD
     Route: 065
     Dates: start: 201803
  5. ZYKADIA [Suspect]
     Active Substance: CERITINIB
     Dosage: 2(150 MG), QD DAILYAT MID DAY
     Route: 048
     Dates: start: 20180507, end: 201807
  6. EMDAR [Concomitant]
     Indication: PRODUCT USED FOR UNKNOWN INDICATION
     Route: 065
  7. VITAMIN D [Concomitant]
     Active Substance: CHOLECALCIFEROL
     Indication: NAIL DISORDER
  8. ZYKADIA [Suspect]
     Active Substance: CERITINIB
     Dosage: 2(150 MG), QD DAILYAT MID DAY
     Route: 048
     Dates: start: 20180404
  9. VITAMIN D [Concomitant]
     Active Substance: CHOLECALCIFEROL
     Indication: SKIN DISORDER
     Route: 065
  10. CRESTOR [Concomitant]
     Active Substance: ROSUVASTATIN CALCIUM
     Indication: IMMUNE SYSTEM DISORDER
  11. VITAMIN D [Concomitant]
     Active Substance: CHOLECALCIFEROL
     Indication: HAIR DISORDER
  12. EPIVAL [Concomitant]
     Active Substance: DIVALPROEX SODIUM
     Indication: SLEEP DISORDER
     Dosage: 750 MG, QD
     Route: 048

REACTIONS (5)
  - Head injury [Recovered/Resolved with Sequelae]
  - Thyroid hormones increased [Not Recovered/Not Resolved]
  - Cerebral infarction [Recovered/Resolved with Sequelae]
  - Fall [Recovered/Resolved with Sequelae]
  - Noninfective encephalitis [Unknown]

NARRATIVE: CASE EVENT DATE: 201803
